FAERS Safety Report 10020755 (Version 2)
Quarter: 2014Q1

REPORT INFORMATION
  Report Type: Spontaneous
  Country: FR (occurrence: FR)
  Receive Date: 20140319
  Receipt Date: 20140319
  Transmission Date: 20141002
  Serious: Yes (Other)
  Sender: FDA-Public Use
  Company Number: FR-ORION CORPORATION ORION PHARMA-ENTC2014-0076

PATIENT
  Age: 78 Year
  Sex: Male
  Weight: 78 kg

DRUGS (6)
  1. STALEVO [Suspect]
     Indication: PARKINSON^S DISEASE
     Dosage: STRENGTH: 150/37.5/200 MG
     Route: 048
     Dates: start: 20140206, end: 20140217
  2. DEROXAT [Concomitant]
     Route: 065
  3. DEPRENYL [Concomitant]
     Route: 065
  4. NORSET [Concomitant]
     Route: 065
  5. XANAX [Concomitant]
     Route: 065
  6. INEXIUM [Concomitant]
     Route: 065

REACTIONS (1)
  - Sexually inappropriate behaviour [Recovered/Resolved]
